FAERS Safety Report 20567181 (Version 5)
Quarter: 2023Q1

REPORT INFORMATION
  Report Type: Report from Study
  Country: AR (occurrence: AR)
  Receive Date: 20220308
  Receipt Date: 20230306
  Transmission Date: 20230418
  Serious: Yes (Hospitalization, Other)
  Sender: FDA-Public Use
  Company Number: AR-NOVARTISPH-NVSC2021AR019303

PATIENT
  Age: 72 Year
  Sex: Female

DRUGS (2)
  1. KISQALI [Suspect]
     Active Substance: RIBOCICLIB
     Indication: Breast cancer metastatic
     Dosage: 600 MG, QD (THROUGH THE MOUTH)
     Route: 048
     Dates: start: 20191212
  2. KETOROLAC [Suspect]
     Active Substance: KETOROLAC TROMETHAMINE
     Indication: Product used for unknown indication
     Dosage: UNK
     Route: 065

REACTIONS (13)
  - Fall [Unknown]
  - Gastrointestinal injury [Unknown]
  - Haematemesis [Unknown]
  - Haematocrit decreased [Unknown]
  - Gastric haemorrhage [Unknown]
  - Spinal disorder [Unknown]
  - Feeling abnormal [Unknown]
  - Pain in extremity [Unknown]
  - Vomiting [Unknown]
  - Pain [Recovered/Resolved]
  - Ill-defined disorder [Unknown]
  - Osteoporosis [Unknown]
  - Inappropriate schedule of product administration [Unknown]

NARRATIVE: CASE EVENT DATE: 20191212
